FAERS Safety Report 17960471 (Version 2)
Quarter: 2020Q3

REPORT INFORMATION
  Report Type: Spontaneous
  Country: AU (occurrence: AU)
  Receive Date: 20200630
  Receipt Date: 20200706
  Transmission Date: 20201103
  Serious: Yes (Other)
  Sender: FDA-Public Use
  Company Number: AU-TEVA-2020-AU-1794218

PATIENT
  Sex: Male

DRUGS (2)
  1. IMATINIB MESYLATE. [Suspect]
     Active Substance: IMATINIB MESYLATE
     Route: 065
  2. SUNITINIB [Suspect]
     Active Substance: SUNITINIB
     Route: 065

REACTIONS (1)
  - Gastrointestinal stromal tumour [Unknown]
